FAERS Safety Report 6342795-6 (Version None)
Quarter: 2009Q3

REPORT INFORMATION
  Report Type: 
  Country: None (occurrence: None)
  Receive Date: 20090908
  Receipt Date: 20090827
  Transmission Date: 20100115
  Serious: Yes (Other)
  Sender: FDA-Public Use
  Company Number: US-WYE-H10738609

PATIENT
  Sex: Male

DRUGS (14)
  1. TORISEL [Suspect]
     Indication: METASTATIC RENAL CELL CARCINOMA
     Route: 042
     Dates: start: 20080410, end: 20080701
  2. TORISEL [Suspect]
     Dates: start: 20090514, end: 20090625
  3. TORISEL [Suspect]
     Route: 042
     Dates: start: 20090601, end: 20090806
  4. LISINOPRIL [Concomitant]
     Indication: HYPERTENSION
  5. AMLODIPINE [Concomitant]
     Indication: HYPERTENSION
  6. METOPROLOL [Concomitant]
  7. FENTANYL [Concomitant]
  8. LEVOTHYROXINE [Concomitant]
  9. VITAMINS NOS [Concomitant]
  10. OMEPRAZOLE [Concomitant]
  11. DIMETICONE, ACTIVATED [Concomitant]
  12. PERCOCET [Concomitant]
  13. ARICEPT [Concomitant]
  14. LIPITOR [Concomitant]

REACTIONS (2)
  - LUNG DISORDER [None]
  - PNEUMONITIS [None]
